FAERS Safety Report 8833406 (Version 2)
Quarter: 2012Q4

REPORT INFORMATION
  Report Type: 
  Country: FR (occurrence: FR)
  Receive Date: 20121010
  Receipt Date: 20121017
  Transmission Date: 20130627
  Serious: Yes (Other)
  Sender: FDA-Public Use
  Company Number: FR-JNJFOC-20121005564

PATIENT
  Sex: Female

DRUGS (8)
  1. XARELTO [Suspect]
     Indication: CEREBROVASCULAR ACCIDENT PROPHYLAXIS
     Route: 065
  2. XARELTO [Suspect]
     Indication: ATRIAL FIBRILLATION
     Route: 065
  3. LITHIUM [Concomitant]
  4. LEVOTHYROX [Concomitant]
  5. RAMIPRIL [Concomitant]
  6. FLECAINE [Concomitant]
  7. PROPANOLOL [Concomitant]
  8. VITAMIN K [Concomitant]
     Dates: start: 20121008

REACTIONS (1)
  - Hepatitis [Unknown]
